FAERS Safety Report 6820848-3 (Version None)
Quarter: 2010Q3

REPORT INFORMATION
  Report Type: 
  Country: None (occurrence: None)
  Receive Date: 20100707
  Receipt Date: 20070802
  Transmission Date: 20110219
  Serious: No
  Sender: FDA-Public Use
  Company Number: US-PFIZER INC-2007064068

PATIENT
  Age: 33 Year
  Sex: Female
  Weight: 68.04 kg

DRUGS (1)
  1. ZOLOFT [Suspect]
     Indication: OBSESSIVE-COMPULSIVE DISORDER
     Dates: start: 20040101

REACTIONS (6)
  - ANISOCYTOSIS [None]
  - HYPOCHROMASIA [None]
  - IRON DEFICIENCY ANAEMIA [None]
  - MICROCYTOSIS [None]
  - POIKILOCYTOSIS [None]
  - POLYCHROMASIA [None]
